FAERS Safety Report 11583332 (Version 2)
Quarter: 2016Q1

REPORT INFORMATION
  Report Type: Spontaneous
  Country: BE (occurrence: BE)
  Receive Date: 20151001
  Receipt Date: 20160210
  Transmission Date: 20160525
  Serious: Yes (Hospitalization, Other)
  Sender: FDA-Public Use
  Company Number: BE-ACCORD-033972

PATIENT
  Age: 25 Year
  Sex: Male

DRUGS (9)
  1. PREDNISOLONE. [Suspect]
     Active Substance: PREDNISOLONE
     Indication: PRODUCT USED FOR UNKNOWN INDICATION
     Dosage: ALSO TOOK 20 MG ON 2011 AND MAY-2011 (REDUCED), 10 MG ON 2011(INCREASED) AND 20 MG ON 2011 (REDUCED)
     Dates: start: 2007
  2. METHOTREXATE [Suspect]
     Active Substance: METHOTREXATE
     Indication: PRODUCT USED FOR UNKNOWN INDICATION
     Dosage: ALSO RECEIVED METHOTREXATE 15 MG AT 2011 AND 15 MG WEEKLY ON JUN-2012
     Dates: start: 2006
  3. METHYLPREDNISOLONE. [Suspect]
     Active Substance: METHYLPREDNISOLONE
     Indication: PRODUCT USED FOR UNKNOWN INDICATION
     Dosage: 16 MG DAILY
     Dates: start: 2006
  4. CICLOSPORIN [Suspect]
     Active Substance: CYCLOSPORINE
     Indication: PRODUCT USED FOR UNKNOWN INDICATION
     Dosage: 2X100 MG/DAY
     Dates: start: 2007
  5. INFLIXIMAB [Suspect]
     Active Substance: INFLIXIMAB
     Indication: PRODUCT USED FOR UNKNOWN INDICATION
     Dosage: 5 MG/KG EIGHT TIMES WEEKLY
     Dates: start: 201105
  6. SULFASALAZINE. [Concomitant]
     Active Substance: SULFASALAZINE
     Dosage: 3 G DAILY
     Dates: start: 2003
  7. ETANERCEPT [Concomitant]
     Active Substance: ETANERCEPT
     Dosage: 50 MG, ONCE A WEEK
     Route: 058
     Dates: start: 200305
  8. CYCLOPHOSPHAMIDE/CYCLOPHOSPHAMIDE MONOHYDRATE [Suspect]
     Active Substance: CYCLOPHOSPHAMIDE
     Indication: PRODUCT USED FOR UNKNOWN INDICATION
     Dosage: 500 MG, EVERY 3 WEEKS
     Route: 042
     Dates: start: 2011
  9. PIROXICAM. [Concomitant]
     Active Substance: PIROXICAM
     Dosage: 20 MG DAILY
     Dates: start: 2003

REACTIONS (2)
  - Drug ineffective [Unknown]
  - Polychondritis [Recovered/Resolved]
